FAERS Safety Report 16535470 (Version 1)
Quarter: 2019Q3

REPORT INFORMATION
  Report Type: Spontaneous
  Country: SE (occurrence: SE)
  Receive Date: 20190705
  Receipt Date: 20190705
  Transmission Date: 20191004
  Serious: Yes (Disabling)
  Sender: FDA-Public Use
  Company Number: SE-009507513-1906SWE010208

PATIENT
  Age: 77 Year
  Sex: Female
  Weight: 76.5 kg

DRUGS (8)
  1. BETOLVEX [Concomitant]
     Active Substance: CYANOCOBALAMIN
     Dosage: UNK
  2. EZETROL 10 MG TABLETTER [Suspect]
     Active Substance: EZETIMIBE
     Dosage: 10 MILLIGRAM, QD
     Dates: start: 20071115, end: 20110814
  3. SIFROL [Concomitant]
     Active Substance: PRAMIPEXOLE
     Dosage: UNK
     Dates: start: 2001
  4. METOPROLOL. [Concomitant]
     Active Substance: METOPROLOL
     Dosage: UNK
     Dates: start: 1995
  5. MAGNESIUM HYDROXIDE. [Concomitant]
     Active Substance: MAGNESIUM HYDROXIDE
     Dosage: 1, QD
  6. VALSARTAN. [Concomitant]
     Active Substance: VALSARTAN
     Dosage: ^160/12,5 MG^
  7. EZETROL 10 MG TABLETTER [Suspect]
     Active Substance: EZETIMIBE
     Dosage: 10 MILLIGRAM, QD
     Dates: start: 20170501, end: 20190520
  8. ALVEDON [Concomitant]
     Active Substance: ACETAMINOPHEN
     Dosage: UNK

REACTIONS (5)
  - Dyspnoea [Unknown]
  - Asthenia [Unknown]
  - Arthralgia [Unknown]
  - Myalgia [Unknown]
  - Peripheral swelling [Unknown]

NARRATIVE: CASE EVENT DATE: 2017
